FAERS Safety Report 6847388-X (Version None)
Quarter: 2010Q3

REPORT INFORMATION
  Report Type: 
  Country: None (occurrence: None)
  Receive Date: 20100713
  Receipt Date: 20100707
  Transmission Date: 20110219
  Serious: Yes (Death, Hospitalization)
  Sender: FDA-Public Use
  Company Number: 2010SP006393

PATIENT
  Age: 94 Year
  Sex: Male
  Weight: 37.5 kg

DRUGS (9)
  1. REMERON [Suspect]
     Indication: DEPRESSION
     Dosage: 15 MG; ONCE;PO
     Route: 048
     Dates: start: 20100127, end: 20100127
  2. URIEF (SILODOSIN) ALPHA-ADRENORECEPTOR ANTAGONISTS) [Suspect]
     Indication: BENIGN PROSTATIC HYPERPLASIA
     Dosage: 8 MG; ONCE, PO
     Route: 048
     Dates: start: 20100127, end: 20100127
  3. RABEPRAZOLE SODIUM [Concomitant]
  4. YODEL S [Concomitant]
  5. DIART [Concomitant]
  6. MUCOSTA [Concomitant]
  7. MASHI-NON-GAN [Concomitant]
  8. RIKKUNSHI-TO [Concomitant]
  9. POSTERISAN [Concomitant]

REACTIONS (5)
  - ALTERED STATE OF CONSCIOUSNESS [None]
  - DISSEMINATED INTRAVASCULAR COAGULATION [None]
  - HEPATIC FUNCTION ABNORMAL [None]
  - HEPATITIS [None]
  - PNEUMONIA ASPIRATION [None]
